FAERS Safety Report 12498247 (Version 2)
Quarter: 2016Q3

REPORT INFORMATION
  Report Type: Spontaneous
  Country: MX (occurrence: MX)
  Receive Date: 20160627
  Receipt Date: 20160701
  Transmission Date: 20161109
  Serious: Yes (Other)
  Sender: FDA-Public Use
  Company Number: MX-UCBSA-2016023532

PATIENT
  Age: 57 Year
  Sex: Male

DRUGS (5)
  1. CIMZIA [Suspect]
     Active Substance: CERTOLIZUMAB PEGOL
     Indication: OFF LABEL USE
  2. SULFASALAZINE. [Concomitant]
     Active Substance: SULFASALAZINE
     Indication: IMMUNOSUPPRESSION
     Dosage: 500 MG, 3X/DAY (TID)
  3. IRBESARTAN. [Concomitant]
     Active Substance: IRBESARTAN
     Indication: HYPERTENSION
     Dosage: UNK
     Dates: start: 20130602
  4. CIMZIA [Suspect]
     Active Substance: CERTOLIZUMAB PEGOL
     Indication: ANKYLOSING SPONDYLITIS
     Dosage: 400 MG, MONTHLY (QM)
     Route: 058
     Dates: start: 20131004, end: 20160520
  5. CALCORT [Concomitant]
     Active Substance: DEFLAZACORT
     Indication: IMMUNOSUPPRESSION
     Dosage: 18 MG, ONCE DAILY (QD)

REACTIONS (2)
  - Tuberculosis [Not Recovered/Not Resolved]
  - Off label use [Unknown]

NARRATIVE: CASE EVENT DATE: 20131004
